FAERS Safety Report 4636748-3 (Version None)
Quarter: 2005Q2

REPORT INFORMATION
  Report Type: 
  Country: None (occurrence: None)
  Receive Date: 20050414
  Receipt Date: 20050401
  Transmission Date: 20051028
  Serious: Yes (Other)
  Sender: FDA-Public Use
  Company Number: USA-2002-0000680

PATIENT
  Age: 44 Year
  Sex: Male
  Weight: 101.6 kg

DRUGS (20)
  1. OXYCONTIN [Suspect]
     Indication: PAIN
     Dosage: 40 MG, Q12H, ORAL; 80 MG, TID, ORAL
     Route: 048
     Dates: start: 20000615, end: 20010101
  2. TEGRETEOL (CARBAMAZEPINE) [Concomitant]
  3. NORVASC [Concomitant]
  4. ALPRAZOLAM [Concomitant]
  5. PAXIL [Concomitant]
  6. SEPTRA DS (TRIMETHORPRIM, SULFAMETHOXAZOLE) [Concomitant]
  7. HYDROXYZINE [Concomitant]
  8. CEFTIN [Concomitant]
  9. ACETAMINOPHEN AND HYDROCODONE BITARTRATE [Concomitant]
  10. AMOXICILLIN [Concomitant]
  11. PREVACID [Concomitant]
  12. NEURONTIN [Concomitant]
  13. CELEXA [Concomitant]
  14. AUGMENTIN (CLAVULANATE POTASSIUM, AMOXICILLIN TRIHYDRATE) [Concomitant]
  15. PROZAC [Concomitant]
  16. VIAGRA [Concomitant]
  17. PAN-MIST LA (PSEUDOEPHEDRINE HYDROCHLORIDE) [Concomitant]
  18. BIAXIN [Concomitant]
  19. ULTRAM [Concomitant]
  20. TORADOL [Concomitant]

REACTIONS (17)
  - CONSTIPATION [None]
  - DENTAL CARIES [None]
  - DRUG DEPENDENCE [None]
  - DRUG WITHDRAWAL SYNDROME [None]
  - DYSPHONIA [None]
  - EDENTULOUS [None]
  - ERECTILE DYSFUNCTION [None]
  - FACIAL PAIN [None]
  - GASTRITIS [None]
  - GASTROOESOPHAGEAL REFLUX DISEASE [None]
  - INADEQUATE ANALGESIA [None]
  - INSOMNIA [None]
  - NEUROPATHIC PAIN [None]
  - PAIN [None]
  - SEDATION [None]
  - SINUSITIS [None]
  - VISUAL ACUITY REDUCED [None]
